FAERS Safety Report 9695451 (Version 4)
Quarter: 2014Q1

REPORT INFORMATION
  Report Type: Report from Study
  Country: US (occurrence: US)
  Receive Date: 20131119
  Receipt Date: 20140130
  Transmission Date: 20141002
  Serious: Yes (Disabling, Other)
  Sender: FDA-Public Use
  Company Number: PHHY2013US090914

PATIENT
  Sex: Female
  Weight: 76.19 kg

DRUGS (10)
  1. GILENYA [Suspect]
     Indication: MULTIPLE SCLEROSIS
     Dosage: 0.5 MG, QD
     Route: 048
     Dates: start: 20120821
  2. GILENYA [Suspect]
     Dosage: 0.5 MG, QOD
     Route: 048
     Dates: end: 201311
  3. LORAZEPAM [Suspect]
  4. GABAPENTIN [Suspect]
  5. LOSARTAN [Concomitant]
     Indication: HYPERTENSION
     Dosage: 50 MG, QD
  6. VITAMIN B12 [Concomitant]
     Dosage: 2000 UG, UNK
  7. VIT D [Concomitant]
     Dosage: 1000 IU, UNK
     Route: 048
  8. LISINOPRIL [Concomitant]
     Dosage: 10 MG, UNK
  9. ZYRTEC [Concomitant]
  10. DANTROLENE [Concomitant]

REACTIONS (17)
  - Insomnia [Not Recovered/Not Resolved]
  - Panic attack [Not Recovered/Not Resolved]
  - Hyperventilation [Unknown]
  - Heart rate increased [Recovering/Resolving]
  - Tachyphrenia [Recovering/Resolving]
  - Dyspnoea [Not Recovered/Not Resolved]
  - Convulsion [Recovered/Resolved]
  - Chest discomfort [Recovered/Resolved]
  - Pain in extremity [Unknown]
  - Anxiety [Recovering/Resolving]
  - Mania [Unknown]
  - Mood altered [Unknown]
  - Histamine level increased [Unknown]
  - Systemic mastocytosis [Unknown]
  - Alopecia [Recovered/Resolved]
  - Hypoaesthesia [Unknown]
  - Eye pain [Unknown]
